FAERS Safety Report 15042690 (Version 3)
Quarter: 2018Q4

REPORT INFORMATION
  Report Type: Report from Study
  Country: US (occurrence: US)
  Receive Date: 20180621
  Receipt Date: 20181001
  Transmission Date: 20190204
  Serious: Yes (Life-Threatening, Hospitalization, Other)
  Sender: FDA-Public Use
  Company Number: US-ROCHE-2141521

PATIENT
  Age: 51 Year
  Sex: Male
  Weight: 74 kg

DRUGS (13)
  1. SALMETEROL [Concomitant]
     Active Substance: SALMETEROL
  2. ZYRTEC [Concomitant]
     Active Substance: CETIRIZINE HYDROCHLORIDE
  3. OXYCODONE [Concomitant]
     Active Substance: OXYCODONE
     Indication: PAIN
  4. INSULIN [Concomitant]
     Active Substance: INSULIN NOS
  5. KLONOPIN [Suspect]
     Active Substance: CLONAZEPAM
     Indication: SLEEP DISORDER
     Route: 065
     Dates: start: 2017
  6. BUPROPION ER [Concomitant]
     Active Substance: BUPROPION
     Dosage: ONGOING YES:IN PM
     Route: 065
  7. BUPROPION ER [Concomitant]
     Active Substance: BUPROPION
     Dosage: IN AM
     Route: 065
  8. FLUOXETINE [Concomitant]
     Active Substance: FLUOXETINE HYDROCHLORIDE
     Indication: NEUROPATHY PERIPHERAL
  9. OCREVUS [Suspect]
     Active Substance: OCRELIZUMAB
     Indication: PROGRESSIVE MULTIPLE SCLEROSIS
     Route: 065
  10. OCREVUS [Suspect]
     Active Substance: OCRELIZUMAB
     Route: 065
     Dates: start: 20180615
  11. ATENOLOL. [Concomitant]
     Active Substance: ATENOLOL
     Route: 065
  12. LOSARTAN. [Concomitant]
     Active Substance: LOSARTAN
     Indication: DIABETES MELLITUS
     Route: 065
  13. METHYLPHENIDATE. [Concomitant]
     Active Substance: METHYLPHENIDATE

REACTIONS (12)
  - Agitation [Unknown]
  - Hunger [Unknown]
  - Respiratory arrest [Unknown]
  - Screaming [Recovered/Resolved]
  - Disturbance in attention [Not Recovered/Not Resolved]
  - Blood glucose decreased [Recovered/Resolved]
  - Psychotic disorder [Unknown]
  - Skin haemorrhage [Recovered/Resolved]
  - Neuropathy peripheral [Not Recovered/Not Resolved]
  - Aggression [Unknown]
  - Anger [Recovered/Resolved]
  - Tremor [Recovered/Resolved]

NARRATIVE: CASE EVENT DATE: 20180605
